FAERS Safety Report 6141343-3 (Version None)
Quarter: 2009Q2

REPORT INFORMATION
  Report Type: 
  Country: None (occurrence: None)
  Receive Date: 20090402
  Receipt Date: 20090330
  Transmission Date: 20091009
  Serious: Yes (Death, Other)
  Sender: FDA-Public Use
  Company Number: DE-ROCHE-602423

PATIENT
  Sex: Male

DRUGS (1)
  1. XELODA [Suspect]
     Route: 065
     Dates: start: 20080725, end: 20081104

REACTIONS (4)
  - BLINDNESS [None]
  - DEATH [None]
  - HEADACHE [None]
  - LACRIMATION INCREASED [None]
